FAERS Safety Report 13766969 (Version 1)
Quarter: 2017Q3

REPORT INFORMATION
  Report Type: Spontaneous
  Country: None (occurrence: US)
  Receive Date: 20170719
  Receipt Date: 20170719
  Transmission Date: 20171127
  Serious: Yes (Hospitalization)
  Sender: FDA-Public Use
  Company Number: None

PATIENT
  Age: 55 Year
  Sex: Male
  Weight: 60.8 kg

DRUGS (2)
  1. MEMANTINE HYDROCHLORIDE (102290) [Suspect]
     Active Substance: MEMANTINE HYDROCHLORIDE
     Dates: end: 20170626
  2. TAXOTERE [Concomitant]
     Active Substance: DOCETAXEL

REACTIONS (8)
  - Lung adenocarcinoma [None]
  - Cough [None]
  - Malignant neoplasm progression [None]
  - Atelectasis [None]
  - Pulmonary mass [None]
  - Dyspnoea [None]
  - Pleural effusion [None]
  - Speech disorder [None]

NARRATIVE: CASE EVENT DATE: 20170623
